FAERS Safety Report 4761549-5 (Version None)
Quarter: 2005Q3

REPORT INFORMATION
  Report Type: 
  Country: None (occurrence: None)
  Receive Date: 20050901
  Receipt Date: 20041122
  Transmission Date: 20060218
  Serious: Yes (Other)
  Sender: FDA-Public Use
  Company Number: 15430

PATIENT
  Age: 52 Year
  Sex: Male

DRUGS (5)
  1. PACLITAXEL [Suspect]
     Indication: LUNG NEOPLASM MALIGNANT
     Dosage: 175MG/M2 IV
     Route: 042
     Dates: start: 20041119
  2. KYTRIL [Concomitant]
  3. DECADRON [Concomitant]
  4. BENADRYL [Concomitant]
  5. PEPCID [Concomitant]

REACTIONS (3)
  - NAUSEA [None]
  - VISION BLURRED [None]
  - VOMITING [None]
